FAERS Safety Report 6619533-2 (Version None)
Quarter: 2010Q1

REPORT INFORMATION
  Report Type: 
  Country: None (occurrence: None)
  Receive Date: 20100309
  Receipt Date: 20100302
  Transmission Date: 20100710
  Serious: Yes (Hospitalization, Other)
  Sender: FDA-Public Use
  Company Number: US-BAYER-201010630NA

PATIENT
  Age: 22 Year
  Sex: Female
  Weight: 68 kg

DRUGS (1)
  1. YAZ [Suspect]
     Indication: ACNE
     Route: 048
     Dates: start: 20080308, end: 20081008

REACTIONS (2)
  - DEEP VEIN THROMBOSIS [None]
  - PULMONARY EMBOLISM [None]
